FAERS Safety Report 5316476-1 (Version None)
Quarter: 2007Q2

REPORT INFORMATION
  Report Type: 
  Country: None (occurrence: None)
  Receive Date: 20070430
  Receipt Date: 20070416
  Transmission Date: 20071010
  Serious: Yes (Hospitalization)
  Sender: FDA-Public Use
  Company Number: 16351

PATIENT
  Age: 57 Year
  Sex: Female

DRUGS (6)
  1. CARBOPLATIN [Suspect]
     Indication: OVARIAN CANCER
     Dosage: 500 MG DAILY IV
     Route: 042
     Dates: start: 20070309, end: 20070309
  2. POLARAMINE [Concomitant]
  3. TAXOL [Concomitant]
  4. SOLU-MEDROL [Concomitant]
  5. ZANTAC [Concomitant]
  6. ZOFRAN [Concomitant]

REACTIONS (7)
  - BLOOD PRESSURE INCREASED [None]
  - COUGH [None]
  - HYPERSENSITIVITY [None]
  - NAUSEA [None]
  - PARAESTHESIA [None]
  - URTICARIA [None]
  - VOMITING [None]
